FAERS Safety Report 5589413-2 (Version None)
Quarter: 2008Q1

REPORT INFORMATION
  Report Type: 
  Country: None (occurrence: None)
  Receive Date: 20080109
  Receipt Date: 20080109
  Transmission Date: 20080703
  Serious: Yes (Other)
  Sender: FDA-Public Use
  Company Number: None

PATIENT
  Age: 55 Year
  Sex: Female
  Weight: 63.5036 kg

DRUGS (2)
  1. BONIVA [Suspect]
     Indication: COELIAC DISEASE
     Dates: start: 20071230, end: 20071230
  2. BONIVA [Suspect]
     Indication: OSTEOPOROSIS
     Dates: start: 20071230, end: 20071230

REACTIONS (11)
  - ABDOMINAL PAIN UPPER [None]
  - BACK PAIN [None]
  - BONE PAIN [None]
  - DEPRESSION [None]
  - DIZZINESS [None]
  - FATIGUE [None]
  - HEADACHE [None]
  - IMPAIRED WORK ABILITY [None]
  - MIGRAINE WITH AURA [None]
  - PHARYNGOLARYNGEAL PAIN [None]
  - VISUAL DISTURBANCE [None]
